FAERS Safety Report 6122513-7 (Version None)
Quarter: 2009Q1

REPORT INFORMATION
  Report Type: 
  Country: None (occurrence: None)
  Receive Date: 20090318
  Receipt Date: 20081211
  Transmission Date: 20090719
  Serious: No
  Sender: FDA-Public Use
  Company Number: US-ASTRAZENECA-2008UW24895

PATIENT
  Age: 79 Year
  Sex: Female
  Weight: 59 kg

DRUGS (4)
  1. SYMBICORT [Suspect]
     Indication: ASTHMA
     Dosage: 160/4.5 MCG, 2 PUFFS TWICE DAILY
     Route: 055
     Dates: start: 20080601
  2. TRAZODONE HCL [Concomitant]
  3. TEMAZEPAM [Concomitant]
  4. RESTORIL [Concomitant]

REACTIONS (3)
  - DRY MOUTH [None]
  - DYSPHONIA [None]
  - THROAT IRRITATION [None]
